FAERS Safety Report 23379295 (Version 1)
Quarter: 2024Q1

REPORT INFORMATION
  Report Type: Spontaneous
  Country: CZ (occurrence: CZ)
  Receive Date: 20240108
  Receipt Date: 20240108
  Transmission Date: 20240410
  Serious: Yes (Hospitalization, Other)
  Sender: FDA-Public Use
  Company Number: None

PATIENT
  Age: 14 Year
  Sex: Female

DRUGS (3)
  1. ASCORBIC ACID [Suspect]
     Active Substance: ASCORBIC ACID
     Indication: Product used for unknown indication
     Dosage: UNK
     Route: 065
     Dates: start: 20211128, end: 20211128
  2. IBUPROFEN [Suspect]
     Active Substance: IBUPROFEN
     Indication: Product used for unknown indication
     Dosage: UNK
     Route: 065
     Dates: start: 20211128, end: 20211128
  3. ACETAMINOPHEN [Suspect]
     Active Substance: ACETAMINOPHEN
     Indication: Product used for unknown indication
     Dosage: UNK
     Route: 048
     Dates: start: 20211128, end: 20211128

REACTIONS (4)
  - Suicide attempt [Unknown]
  - Abdominal pain upper [Unknown]
  - Vomiting [Unknown]
  - Intentional overdose [Unknown]

NARRATIVE: CASE EVENT DATE: 20211128
